FAERS Safety Report 24268402 (Version 1)
Quarter: 2024Q3

REPORT INFORMATION
  Report Type: Spontaneous
  Country: US (occurrence: None)
  Receive Date: 20240829
  Receipt Date: 20240829
  Transmission Date: 20241016
  Serious: Yes (Hospitalization)
  Sender: Public
  Company Number: None

PATIENT
  Sex: Female

DRUGS (9)
  1. OXBRYTA [Suspect]
     Active Substance: VOXELOTOR
     Dosage: FREQUENCY : DAILY;?
     Route: 048
     Dates: start: 202105
  2. ONDANSETRON [Concomitant]
     Active Substance: ONDANSETRON
  3. ERGOCALCIFEROL [Concomitant]
     Active Substance: ERGOCALCIFEROL
  4. AMOXICILLIN [Concomitant]
     Active Substance: AMOXICILLIN
  5. METHOCARBAMOL [Concomitant]
     Active Substance: METHOCARBAMOL
  6. CELEBREX [Concomitant]
     Active Substance: CELECOXIB
  7. PROTONIX [Concomitant]
     Active Substance: PANTOPRAZOLE SODIUM
  8. hydroxyrea [Concomitant]
  9. DULOXETINE [Concomitant]
     Active Substance: DULOXETINE

REACTIONS (1)
  - Sickle cell anaemia with crisis [None]
